FAERS Safety Report 24148602 (Version 1)
Quarter: 2024Q3

REPORT INFORMATION
  Report Type: Spontaneous
  Country: SE (occurrence: SE)
  Receive Date: 20240729
  Receipt Date: 20240729
  Transmission Date: 20241016
  Serious: Yes (Other)
  Sender: IPSEN
  Company Number: SE-IPSEN Group, Research and Development-2023-24211

PATIENT
  Age: 5 Year
  Sex: Male

DRUGS (3)
  1. TAZVERIK [Suspect]
     Active Substance: TAZEMETOSTAT HYDROBROMIDE
     Indication: Atypical teratoid/rhabdoid tumour of CNS
     Dosage: API POWDER 7G
     Route: 048
     Dates: start: 20211014
  2. TAZVERIK [Suspect]
     Active Substance: TAZEMETOSTAT HYDROBROMIDE
     Indication: Off label use
  3. BIVARACETAM [Concomitant]
     Dates: start: 20230720

REACTIONS (3)
  - Disease progression [Unknown]
  - Cyst [Unknown]
  - Product use in unapproved indication [Unknown]

NARRATIVE: CASE EVENT DATE: 20211014
